FAERS Safety Report 6235723-5 (Version None)
Quarter: 2009Q2

REPORT INFORMATION
  Report Type: 
  Country: None (occurrence: None)
  Receive Date: 20090619
  Receipt Date: 20080512
  Transmission Date: 20091009
  Serious: Yes (Hospitalization, Other)
  Sender: FDA-Public Use
  Company Number: US-ASTRAZENECA-2007UW07766

PATIENT
  Age: 17784 Day
  Sex: Male
  Weight: 246.8 kg

DRUGS (10)
  1. SEROQUEL [Suspect]
     Indication: POST-TRAUMATIC STRESS DISORDER
     Dosage: 50 MG TO 600 MG
     Route: 048
     Dates: start: 20000101
  2. SEROQUEL [Suspect]
     Dosage: 25-600 MG
     Route: 048
     Dates: start: 19990104
  3. LEXAPRO [Concomitant]
     Dates: start: 20020101
  4. COUMADIN [Concomitant]
     Dates: start: 20000110
  5. LISINOPRIL [Concomitant]
     Dosage: 10-40 MG
     Route: 048
     Dates: start: 20031107
  6. ALBUTEROL [Concomitant]
     Dosage: STRENGH 2.5 MG/0.5 ML
     Dates: start: 20010521
  7. LASIX [Concomitant]
     Dosage: 20-80 MG
     Route: 048
     Dates: start: 20020819
  8. CELEXA [Concomitant]
     Dosage: 20-80 MG
     Route: 048
     Dates: start: 20020110
  9. ALTACE [Concomitant]
     Route: 048
     Dates: start: 20020827
  10. ATENOLOL [Concomitant]
     Dosage: 25-50 MG
     Route: 048
     Dates: start: 20010315

REACTIONS (5)
  - DIABETES MELLITUS [None]
  - DIABETIC KETOACIDOSIS [None]
  - DIABETIC NEUROPATHY [None]
  - HYPERGLYCAEMIA [None]
  - TYPE 2 DIABETES MELLITUS [None]
